FAERS Safety Report 10773983 (Version 1)
Quarter: 2015Q1

REPORT INFORMATION
  Report Type: Report from Study
  Country: BR (occurrence: BR)
  Receive Date: 20150208
  Receipt Date: 20150208
  Transmission Date: 20150721
  Serious: Yes (Other)
  Sender: FDA-Public Use
  Company Number: BR-EMD SERONO-7172852

PATIENT
  Age: 29 Year
  Sex: Female

DRUGS (7)
  1. FLUOXETINE [Concomitant]
     Active Substance: FLUOXETINE\FLUOXETINE HYDROCHLORIDE
     Indication: PRODUCT USED FOR UNKNOWN INDICATION
  2. FAMPRIDINE [Suspect]
     Active Substance: DALFAMPRIDINE
     Indication: PYREXIA
  3. REBIF [Suspect]
     Active Substance: INTERFERON BETA-1A
     Indication: RELAPSING-REMITTING MULTIPLE SCLEROSIS
     Dates: start: 20110810
  4. FAMPRIDINE [Suspect]
     Active Substance: DALFAMPRIDINE
     Indication: PAIN
  5. FAMPRIDINE [Suspect]
     Active Substance: DALFAMPRIDINE
     Indication: HEADACHE
  6. IBUPROFEN. [Concomitant]
     Active Substance: IBUPROFEN
     Indication: PREMEDICATION
  7. MANTIDAN [Concomitant]
     Active Substance: AMANTADINE HYDROCHLORIDE
     Indication: PRODUCT USED FOR UNKNOWN INDICATION

REACTIONS (14)
  - Rheumatoid arthritis [Recovering/Resolving]
  - Heat stroke [Unknown]
  - Somnolence [Unknown]
  - Pain [Unknown]
  - Abdominal pain upper [Recovered/Resolved]
  - Pyrexia [Unknown]
  - Diarrhoea [Recovered/Resolved]
  - Arthralgia [Unknown]
  - Dysstasia [Unknown]
  - Injection site erythema [Unknown]
  - Back pain [Unknown]
  - Headache [Unknown]
  - Eating disorder [Recovered/Resolved]
  - Chills [Unknown]

NARRATIVE: CASE EVENT DATE: 201210
